FAERS Safety Report 18120713 (Version 1)
Quarter: 2020Q3

REPORT INFORMATION
  Report Type: Other
  Country: CA (occurrence: CA)
  Receive Date: 20200806
  Receipt Date: 20200806
  Transmission Date: 20201103
  Serious: Yes (Other)
  Sender: FDA-Public Use
  Company Number: CA-PURDUE-USA-2020-0160644

PATIENT
  Age: 15 Year
  Sex: Male

DRUGS (2)
  1. HYPERICUM PERFORATUM [Suspect]
     Active Substance: HYPERICUM PERFORATUM WHOLE
     Indication: DEPRESSIVE SYMPTOM
     Dosage: UNK
     Route: 005
  2. METHYLPHENIDATE HYDROCHLORIDE. [Suspect]
     Active Substance: METHYLPHENIDATE HYDROCHLORIDE
     Indication: ATTENTION DEFICIT HYPERACTIVITY DISORDER
     Dosage: 20 MG, DAILY
     Route: 048

REACTIONS (6)
  - Crying [Recovered/Resolved]
  - Drug interaction [Recovered/Resolved]
  - Aggression [Recovered/Resolved]
  - Agitation [Recovered/Resolved]
  - Depression [Recovered/Resolved]
  - Disturbance in attention [Recovered/Resolved]
